FAERS Safety Report 9153037 (Version 1)
Quarter: 2013Q1

REPORT INFORMATION
  Report Type: Spontaneous
  Country: US (occurrence: US)
  Receive Date: 20130310
  Receipt Date: 20130310
  Transmission Date: 20140127
  Serious: No
  Sender: FDA-Public Use
  Company Number: US-ASTRAZENECA-2013SE08718

PATIENT
  Age: 58 Year
  Sex: Female
  Weight: 81.6 kg

DRUGS (4)
  1. SYMBICORT PMDI [Suspect]
     Indication: ASTHMA
     Dosage: 160 MCG, 2 PUFFS, TWO TIMES A DAY
     Route: 055
     Dates: start: 201208
  2. LORATADINE [Concomitant]
     Indication: SINUS DISORDER
     Route: 048
  3. VENTOLINE [Concomitant]
     Indication: INHALATION THERAPY
     Dosage: TWICE A WEEK
     Route: 055
  4. VENTOLINE [Concomitant]
     Indication: INHALATION THERAPY
     Dosage: AS REQUIRED
     Route: 055

REACTIONS (4)
  - Chest discomfort [Unknown]
  - Throat tightness [Unknown]
  - Dizziness [Unknown]
  - Off label use [Unknown]
